FAERS Safety Report 14297962 (Version 2)
Quarter: 2018Q3

REPORT INFORMATION
  Report Type: Spontaneous
  Country: KR (occurrence: KR)
  Receive Date: 20171218
  Receipt Date: 20180726
  Transmission Date: 20181010
  Serious: Yes (Death, Hospitalization, Other)
  Sender: FDA-Public Use
  Company Number: KR-009507513-1712KOR006345

PATIENT
  Sex: Male

DRUGS (1)
  1. PEMBROLIZUMAB. [Suspect]
     Active Substance: PEMBROLIZUMAB
     Indication: GASTRIC CANCER
     Dosage: UNK

REACTIONS (4)
  - Malignant neoplasm progression [Unknown]
  - Product use in unapproved indication [Unknown]
  - Death [Fatal]
  - Adverse event [Unknown]

NARRATIVE: CASE EVENT DATE: 20171005
